FAERS Safety Report 8406610-9 (Version None)
Quarter: 2012Q2

REPORT INFORMATION
  Report Type: 
  Country: None (occurrence: None)
  Receive Date: 20120604
  Receipt Date: 20120523
  Transmission Date: 20120825
  Serious: Yes (Hospitalization)
  Sender: FDA-Public Use
  Company Number: DE-ELI_LILLY_AND_COMPANY-DE201205008240

PATIENT
  Sex: Female

DRUGS (5)
  1. FORTEO [Suspect]
     Indication: OSTEOPOROSIS
     Dosage: UNK, QD
     Route: 058
     Dates: start: 20110824
  2. TRAMADOL HCL [Concomitant]
  3. NOVALGIN                           /00169801/ [Concomitant]
     Dosage: UNK, PRN
  4. LEVOTHYROXINE SODIUM [Concomitant]
  5. ANTIDEPRESSANTS [Concomitant]

REACTIONS (1)
  - MENTAL DISORDER [None]
